FAERS Safety Report 4802867-1 (Version None)
Quarter: 2005Q4

REPORT INFORMATION
  Report Type: 
  Country: None (occurrence: None)
  Receive Date: 20051017
  Receipt Date: 20051017
  Transmission Date: 20060501
  Serious: Yes (Hospitalization)
  Sender: FDA-Public Use
  Company Number: None

PATIENT
  Age: 34 Year
  Sex: Female
  Weight: 58.9676 kg

DRUGS (2)
  1. LIDOCAINE [Suspect]
     Dosage: MULTIPLE INJECTIONS 2 TREATMENTS
  2. MESOTHEROPY [Suspect]
     Dosage: CREAM OVER BODY AND INJECTION 2 TREATMENTS TOP
     Route: 061
     Dates: start: 20050626, end: 20050710

REACTIONS (9)
  - ANGIOPATHY [None]
  - BLOOD PRESSURE ABNORMAL [None]
  - BLOOD PRESSURE DECREASED [None]
  - DEHYDRATION [None]
  - INJECTION SITE MASS [None]
  - INJECTION SITE PAIN [None]
  - INJECTION SITE SWELLING [None]
  - LOSS OF CONSCIOUSNESS [None]
  - SYNCOPE [None]
